FAERS Safety Report 13424636 (Version 1)
Quarter: 2017Q2

REPORT INFORMATION
  Report Type: Spontaneous
  Country: AU (occurrence: AU)
  Receive Date: 20170410
  Receipt Date: 20170410
  Transmission Date: 20170830
  Serious: Yes (Life-Threatening, Hospitalization, Other)
  Sender: FDA-Public Use
  Company Number: PHHY2017AU041272

PATIENT
  Age: 7 Year
  Sex: Female

DRUGS (4)
  1. NUROFEN [Suspect]
     Active Substance: IBUPROFEN
     Indication: PRODUCT USED FOR UNKNOWN INDICATION
     Dosage: UNK
     Route: 065
  2. EXJADE [Suspect]
     Active Substance: DEFERASIROX
     Dosage: 750 MG, (33 MG/KG/DAY)
     Route: 065
     Dates: start: 20161118
  3. EXJADE [Suspect]
     Active Substance: DEFERASIROX
     Indication: PRODUCT USED FOR UNKNOWN INDICATION
     Dosage: 625 MG,(30 MG/KG/DAY)
     Route: 065
  4. PARAFON [Suspect]
     Active Substance: ACETAMINOPHEN\CHLORZOXAZONE
     Indication: PRODUCT USED FOR UNKNOWN INDICATION
     Dosage: UNK
     Route: 065

REACTIONS (12)
  - Anaemia [Unknown]
  - Haemorrhage [Unknown]
  - Pneumonia [Unknown]
  - Hepatic failure [Unknown]
  - Hyperglycaemia [Unknown]
  - Gastrointestinal disorder [Not Recovered/Not Resolved]
  - Acute hepatic failure [Unknown]
  - Pyrexia [Unknown]
  - Haematemesis [Unknown]
  - Duodenal ulcer haemorrhage [Unknown]
  - Lactic acidosis [Unknown]
  - Coagulopathy [Unknown]
